FAERS Safety Report 7410895-5 (Version None)
Quarter: 2011Q2

REPORT INFORMATION
  Report Type: 
  Country: None (occurrence: None)
  Receive Date: 20110413
  Receipt Date: 20110331
  Transmission Date: 20111010
  Serious: Yes (Death, Hospitalization)
  Sender: FDA-Public Use
  Company Number: US-RANBAXY-2011US-41068

PATIENT

DRUGS (6)
  1. DILTIAZEM [Concomitant]
     Indication: PRODUCT USED FOR UNKNOWN INDICATION
     Dosage: 180 MG, UNK
     Route: 065
  2. LIQUID POTASSIUM [Concomitant]
     Indication: PRODUCT USED FOR UNKNOWN INDICATION
     Route: 065
  3. SIMVASTATIN [Concomitant]
     Indication: PRODUCT USED FOR UNKNOWN INDICATION
     Dosage: 80 MG, UNK
     Route: 065
  4. SERTRALINE HYDROCHLORIDE [Concomitant]
     Indication: PRODUCT USED FOR UNKNOWN INDICATION
     Dosage: 100 MG, UNK
     Route: 065
  5. ERGOCALCIFEROL VITAMIN D [Concomitant]
     Indication: PRODUCT USED FOR UNKNOWN INDICATION
     Dosage: UNK
     Route: 065
  6. CETIRIZINE HCL [Suspect]
     Indication: HYPERSENSITIVITY
     Dosage: 10 MG, ONE TAB
     Route: 065
     Dates: start: 20110110

REACTIONS (7)
  - PNEUMONIA [None]
  - BLINDNESS [None]
  - CONVULSION [None]
  - DISORIENTATION [None]
  - AGITATION [None]
  - DEHYDRATION [None]
  - DEAFNESS [None]
